FAERS Safety Report 15631441 (Version 1)
Quarter: 2018Q4

REPORT INFORMATION
  Report Type: Other
  Country: NL (occurrence: NL)
  Receive Date: 20181119
  Receipt Date: 20181119
  Transmission Date: 20190205
  Serious: Yes (Hospitalization, Other)
  Sender: FDA-Public Use
  Company Number: NL-APOTEX-2018AP024864

PATIENT
  Sex: Female

DRUGS (1)
  1. PAROXETINE TABLET [Suspect]
     Active Substance: PAROXETINE
     Indication: DEPRESSION
     Dosage: 20 MG, QD (1DD1)
     Route: 050

REACTIONS (2)
  - Foetal exposure during pregnancy [Unknown]
  - Persistent foetal circulation [Recovering/Resolving]
